FAERS Safety Report 9009139 (Version 1)
Quarter: 2013Q1

REPORT INFORMATION
  Report Type: Spontaneous
  Country: IN (occurrence: IN)
  Receive Date: 20130111
  Receipt Date: 20130111
  Transmission Date: 20140127
  Serious: Yes (Death)
  Sender: FDA-Public Use
  Company Number: IN-PFIZER INC-2012281302

PATIENT
  Age: 6 Year
  Sex: Female

DRUGS (3)
  1. ADRIAMYCIN [Suspect]
     Indication: NEPHROBLASTOMA
     Dosage: 60 MG/M2, UNK
  2. DACTINOMYCIN [Suspect]
     Indication: NEPHROBLASTOMA
     Dosage: 45 UG/KG, UNK
  3. VINCRISTINE [Suspect]
     Indication: NEPHROBLASTOMA
     Dosage: 1.5 MG/M2, UNK

REACTIONS (1)
  - Tumour haemorrhage [Fatal]
